FAERS Safety Report 9624396 (Version 1)
Quarter: 2013Q4

REPORT INFORMATION
  Report Type: Spontaneous
  Country: FR (occurrence: FR)
  Receive Date: 20131015
  Receipt Date: 20131015
  Transmission Date: 20140711
  Serious: Yes (Hospitalization)
  Sender: FDA-Public Use
  Company Number: FR-GLAXOSMITHKLINE-B0928078A

PATIENT
  Age: 84 Year
  Sex: Female

DRUGS (5)
  1. ARIXTRA [Suspect]
     Indication: PRODUCT USED FOR UNKNOWN INDICATION
     Route: 065
     Dates: start: 20130802, end: 20130810
  2. TRAMADOL HYDROCHLORIDE [Concomitant]
     Route: 065
     Dates: start: 20130802, end: 20130816
  3. INEXIUM [Concomitant]
     Dates: end: 20130816
  4. DOLIPRANE [Concomitant]
  5. LOVENOX [Concomitant]
     Route: 058
     Dates: start: 2013, end: 201308

REACTIONS (2)
  - Erythema [Recovered/Resolved]
  - Rash pruritic [Recovered/Resolved]
